FAERS Safety Report 5961703-0 (Version None)
Quarter: 2008Q4

REPORT INFORMATION
  Report Type: 
  Country: None (occurrence: None)
  Receive Date: 20081114
  Receipt Date: 20080714
  Transmission Date: 20090506
  Serious: No
  Sender: FDA-Public Use
  Company Number: WAES 0807USA02865

PATIENT
  Sex: 0

DRUGS (2)
  1. ISENTRESS [Suspect]
     Indication: HIV INFECTION
     Dosage: 400 MG/ BID/ PO
     Route: 048
  2. ANTIVIRAL (UNSPECIFIED) [Concomitant]

REACTIONS (2)
  - PRURITUS [None]
  - RASH [None]
